FAERS Safety Report 21872528 (Version 1)
Quarter: 2023Q1

REPORT INFORMATION
  Report Type: Spontaneous
  Country: US (occurrence: US)
  Receive Date: 20230117
  Receipt Date: 20230117
  Transmission Date: 20230418
  Serious: No
  Sender: FDA-Public Use
  Company Number: US-002147023-NVSC2023US009992

PATIENT
  Sex: Male

DRUGS (2)
  1. VOTRIENT [Suspect]
     Active Substance: PAZOPANIB HYDROCHLORIDE
     Indication: Prostate cancer
     Dosage: 4 DOSAGE FORM, QD
     Route: 048
  2. VOTRIENT [Suspect]
     Active Substance: PAZOPANIB HYDROCHLORIDE
     Indication: Lung disorder
     Dosage: 3 DOSAGE FORM, QD
     Route: 048

REACTIONS (2)
  - Nasopharyngitis [Unknown]
  - Non-cardiac chest pain [Unknown]
